FAERS Safety Report 25600105 (Version 1)
Quarter: 2025Q3

REPORT INFORMATION
  Report Type: Spontaneous
  Country: US (occurrence: US)
  Receive Date: 20250724
  Receipt Date: 20250724
  Transmission Date: 20251021
  Serious: Yes (Life-Threatening, Hospitalization)
  Sender: ASPIRO PHARMA
  Company Number: US-ASPIRO-ASP2025US04158

PATIENT

DRUGS (3)
  1. PROPOFOL [Suspect]
     Active Substance: PROPOFOL
     Indication: Agitation
     Route: 065
  2. PROPOFOL [Suspect]
     Active Substance: PROPOFOL
  3. FENTANYL [Concomitant]
     Active Substance: FENTANYL
     Indication: Sedative therapy
     Route: 065

REACTIONS (1)
  - Myoclonus [Recovered/Resolved]
